FAERS Safety Report 6222044-X (Version None)
Quarter: 2009Q2

REPORT INFORMATION
  Report Type: 
  Country: None (occurrence: None)
  Receive Date: 20090609
  Receipt Date: 20081124
  Transmission Date: 20091009
  Serious: Yes (Death)
  Sender: FDA-Public Use
  Company Number: 2008AP003248

PATIENT
  Age: 63 Year
  Sex: Male

DRUGS (3)
  1. CYCLOSPORINE [Suspect]
     Indication: IMMUNOSUPPRESSION
  2. PREDNISONE [Suspect]
     Indication: IMMUNOSUPPRESSION
  3. MYCOPHENOLATE MOFETIL [Suspect]
     Indication: IMMUNOSUPPRESSION

REACTIONS (14)
  - ARTERITIS CORONARY [None]
  - ASCITES [None]
  - CARDIAC FAILURE [None]
  - CARDIAC INDEX DECREASED [None]
  - DYSPNOEA [None]
  - EJECTION FRACTION DECREASED [None]
  - EPSTEIN-BARR VIRUS ASSOCIATED LYMPHOPROLIFERATIVE DISORDER [None]
  - FATIGUE [None]
  - HEART TRANSPLANT REJECTION [None]
  - INTRACARDIAC THROMBUS [None]
  - MYOCARDIAL FIBROSIS [None]
  - MYOCARDITIS [None]
  - PITTING OEDEMA [None]
  - VASCULITIS [None]
